FAERS Safety Report 6930884-4 (Version None)
Quarter: 2010Q3

REPORT INFORMATION
  Report Type: 
  Country: None (occurrence: None)
  Receive Date: 20100818
  Receipt Date: 20100812
  Transmission Date: 20110219
  Serious: Yes (Hospitalization, Other)
  Sender: FDA-Public Use
  Company Number: US-CEPHALON-2010003762

PATIENT
  Sex: Female
  Weight: 77 kg

DRUGS (12)
  1. TRISENOX [Suspect]
     Indication: GLIOBLASTOMA MULTIFORME
     Route: 042
     Dates: start: 20100524, end: 20100709
  2. TEMOZOLOMIDE [Suspect]
     Indication: GLIOBLASTOMA MULTIFORME
     Dates: start: 20100524, end: 20100701
  3. DECADRON [Suspect]
  4. CRESTOR [Concomitant]
  5. K-DUR [Concomitant]
  6. NEXIUM [Concomitant]
  7. XALATAN [Concomitant]
  8. NIACIN [Concomitant]
  9. ZYPREXA [Concomitant]
  10. MAGNESIUM OXIDE [Concomitant]
  11. PLATELET TRANSFUSIONS [Concomitant]
  12. NEULASTA [Concomitant]

REACTIONS (2)
  - MENINGOENCEPHALITIS HERPETIC [None]
  - PANCYTOPENIA [None]
